FAERS Safety Report 5602983-0 (Version None)
Quarter: 2008Q1

REPORT INFORMATION
  Report Type: 
  Country: None (occurrence: None)
  Receive Date: 20080125
  Receipt Date: 20080115
  Transmission Date: 20080703
  Serious: Yes (Other)
  Sender: FDA-Public Use
  Company Number: US-PFIZER INC-2008005484

PATIENT
  Sex: Female
  Weight: 65.909 kg

DRUGS (2)
  1. DILANTIN [Suspect]
     Indication: EPILEPSY
  2. DILANTIN [Suspect]
     Indication: EPILEPSY

REACTIONS (2)
  - EPILEPTIC AURA [None]
  - SPINAL FUSION SURGERY [None]
